FAERS Safety Report 25648643 (Version 2)
Quarter: 2025Q4

REPORT INFORMATION
  Report Type: Spontaneous
  Country: US (occurrence: US)
  Receive Date: 20250806
  Receipt Date: 20251104
  Transmission Date: 20260119
  Serious: Yes (Hospitalization, Other)
  Sender: SANOFI AVENTIS
  Company Number: US-SA-2025SA227471

PATIENT
  Sex: Female
  Weight: 100 kg

DRUGS (1)
  1. KEVZARA [Suspect]
     Active Substance: SARILUMAB
     Indication: Polymyalgia rheumatica
     Dosage: 200 MG, QOW
     Route: 058

REACTIONS (6)
  - Cardiac disorder [Unknown]
  - Loss of consciousness [Unknown]
  - Pneumonia [Recovered/Resolved]
  - Tremor [Not Recovered/Not Resolved]
  - COVID-19 [Recovered/Resolved]
  - Sinus congestion [Not Recovered/Not Resolved]
